FAERS Safety Report 4885937-1 (Version None)
Quarter: 2006Q1

REPORT INFORMATION
  Report Type: 
  Country: None (occurrence: None)
  Receive Date: 20060117
  Receipt Date: 20060104
  Transmission Date: 20060701
  Serious: Yes (Hospitalization)
  Sender: FDA-Public Use
  Company Number: GXKR2006GB00446

PATIENT
  Age: 39 Year
  Sex: Male

DRUGS (8)
  1. ATENOLOL [Suspect]
     Indication: HYPERTENSION
     Dosage: 50 MG, QD, ORAL
     Route: 048
  2. CLOZAPINE [Suspect]
     Dosage: 700 MG, QD, ORAL
     Route: 048
     Dates: start: 20030221, end: 20050622
  3. CLOZAPINE [Suspect]
     Dosage: 700 MG, QD, ORAL
     Route: 048
     Dates: start: 20050623, end: 20051109
  4. BENDROFLUAZIDE(BENDROFLUMETHIAZIDE) [Suspect]
     Indication: HYPERTENSION
     Dosage: 2.5 MG, QD, ORAL
     Route: 048
  5. ASPIRINE 9ACETYLSALICYLIC ACID) [Concomitant]
  6. SIMVASTATIN [Concomitant]
  7. HYOSCINE HBR HYT [Concomitant]
  8. AMISULPRIDE (AMISULPRIDE) [Concomitant]

REACTIONS (2)
  - BLOOD GLUCOSE DECREASED [None]
  - DIABETES MELLITUS INSULIN-DEPENDENT [None]
